FAERS Safety Report 13690700 (Version 3)
Quarter: 2017Q4

REPORT INFORMATION
  Report Type: Spontaneous
  Country: US (occurrence: US)
  Receive Date: 20170626
  Receipt Date: 20171226
  Transmission Date: 20180320
  Serious: No
  Sender: FDA-Public Use
  Company Number: US-CLOVIS ONCOLOGY-CLO-2017-000463

PATIENT
  Age: 60 Year
  Sex: Female

DRUGS (3)
  1. RUBRACA [Suspect]
     Active Substance: RUCAPARIB CAMSYLATE
     Dosage: 600 MG, BID
     Route: 048
     Dates: start: 20170505, end: 2017
  2. RUBRACA [Suspect]
     Active Substance: RUCAPARIB CAMSYLATE
     Indication: OVARIAN CANCER
     Dosage: 600 MG, BID
     Route: 048
     Dates: start: 20170508, end: 2017
  3. RUBRACA [Suspect]
     Active Substance: RUCAPARIB CAMSYLATE
     Dosage: 600 MG, BID
     Route: 048
     Dates: start: 2017

REACTIONS (13)
  - Weight decreased [Unknown]
  - Blood count abnormal [Unknown]
  - Adverse event [Unknown]
  - Dizziness [Unknown]
  - Drug ineffective [Unknown]
  - Ear pain [Recovering/Resolving]
  - Nausea [Recovered/Resolved]
  - Drug dose omission [Unknown]
  - Pharyngitis [Recovered/Resolved]
  - Oropharyngeal pain [Recovering/Resolving]
  - Fatigue [Unknown]
  - Decreased appetite [Recovering/Resolving]
  - Ear infection [Not Recovered/Not Resolved]

NARRATIVE: CASE EVENT DATE: 2017
